FAERS Safety Report 4659494-9 (Version None)
Quarter: 2005Q2

REPORT INFORMATION
  Report Type: 
  Country: None (occurrence: None)
  Receive Date: 20050504
  Receipt Date: 20050422
  Transmission Date: 20051028
  Serious: Yes (Hospitalization)
  Sender: FDA-Public Use
  Company Number: 603481

PATIENT
  Age: 9 Year
  Sex: Male

DRUGS (2)
  1. GAMMAGARD S/D [Suspect]
  2. INSULIN [Concomitant]

REACTIONS (6)
  - ARRHYTHMIA [None]
  - DRUG INTERACTION [None]
  - HERPES VIRUS INFECTION [None]
  - HYPOTENSION [None]
  - INFUSION RELATED REACTION [None]
  - SUPRAVENTRICULAR TACHYCARDIA [None]
